FAERS Safety Report 8372672-0 (Version None)
Quarter: 2012Q2

REPORT INFORMATION
  Report Type: 
  Country: None (occurrence: None)
  Receive Date: 20120521
  Receipt Date: 20120507
  Transmission Date: 20120825
  Serious: Yes (Other)
  Sender: FDA-Public Use
  Company Number: HK-MYLANLABS-2012S1009543

PATIENT
  Age: 75 Year
  Sex: Female

DRUGS (2)
  1. WARFARIN SODIUM [Concomitant]
     Indication: THROMBOSIS PROPHYLAXIS
     Route: 065
  2. AMIODARONE HCL [Suspect]
     Route: 065

REACTIONS (3)
  - HYPERTHYROIDISM [None]
  - PULMONARY HYPERTENSION [None]
  - RIGHT VENTRICULAR FAILURE [None]
